FAERS Safety Report 9645863 (Version 1)
Quarter: 2013Q4

REPORT INFORMATION
  Report Type: Spontaneous
  Country: US (occurrence: None)
  Receive Date: 20131024
  Receipt Date: 20131024
  Transmission Date: 20140711
  Serious: No
  Sender: FDA-Public Use
  Company Number: None

PATIENT
  Age: 45 Year
  Sex: Female

DRUGS (1)
  1. STIVARGA [Suspect]
     Dosage: QD X 21
     Route: 048
     Dates: start: 20131018

REACTIONS (4)
  - Nausea [None]
  - Dysphonia [None]
  - Fatigue [None]
  - Palmar-plantar erythrodysaesthesia syndrome [None]
